FAERS Safety Report 13713178 (Version 4)
Quarter: 2018Q2

REPORT INFORMATION
  Report Type: Report from Study
  Country: CO (occurrence: CO)
  Receive Date: 20170704
  Receipt Date: 20180409
  Transmission Date: 20180711
  Serious: Yes (Other)
  Sender: FDA-Public Use
  Company Number: CO-AMGEN-COLSL2017099575

PATIENT
  Age: 65 Year
  Sex: Female

DRUGS (3)
  1. ARANESP [Suspect]
     Active Substance: DARBEPOETIN ALFA
     Indication: NEPHROGENIC ANAEMIA
     Dosage: 80 MCG, Q2WK
     Route: 058
     Dates: start: 20170608
  2. ARANESP [Suspect]
     Active Substance: DARBEPOETIN ALFA
     Dosage: 50 MCG, QMO
     Route: 058
     Dates: end: 20171106
  3. ARANESP [Suspect]
     Active Substance: DARBEPOETIN ALFA
     Dosage: 80 MCG, QMO
     Route: 065

REACTIONS (4)
  - Discomfort [Not Recovered/Not Resolved]
  - Hypertensive crisis [Recovered/Resolved]
  - Influenza [Not Recovered/Not Resolved]
  - Headache [Not Recovered/Not Resolved]

NARRATIVE: CASE EVENT DATE: 20170608
